FAERS Safety Report 4444243-X (Version None)
Quarter: 2004Q3

REPORT INFORMATION
  Report Type: 
  Country: None (occurrence: None)
  Receive Date: 20040902
  Receipt Date: 20040812
  Transmission Date: 20050211
  Serious: Yes (Hospitalization)
  Sender: FDA-Public Use
  Company Number: USA040875426

PATIENT
  Age: 56 Year
  Sex: Female

DRUGS (2)
  1. PROZAC [Suspect]
  2. ZYPREXA [Suspect]

REACTIONS (1)
  - UNEVALUABLE EVENT [None]
